FAERS Safety Report 18647634 (Version 1)
Quarter: 2020Q4

REPORT INFORMATION
  Report Type: Spontaneous
  Country: US (occurrence: US)
  Receive Date: 20201222
  Receipt Date: 20201222
  Transmission Date: 20210114
  Serious: No
  Sender: FDA-Public Use
  Company Number: US-RECKITT BENCKISER HEALTHCARE INT LIMITED-RB-93289-2019

PATIENT
  Age: 76 Year
  Sex: Female

DRUGS (3)
  1. DELSYM [Suspect]
     Active Substance: DEXTROMETHORPHAN
     Indication: COUGH
  2. DELSYM [Suspect]
     Active Substance: DEXTROMETHORPHAN
     Indication: INFLUENZA
  3. DELSYM [Suspect]
     Active Substance: DEXTROMETHORPHAN
     Indication: NASOPHARYNGITIS
     Dosage: UNK, QD
     Route: 065

REACTIONS (4)
  - Lip swelling [Not Recovered/Not Resolved]
  - Swelling face [Not Recovered/Not Resolved]
  - Product use in unapproved indication [Not Recovered/Not Resolved]
  - Feeling abnormal [Not Recovered/Not Resolved]

NARRATIVE: CASE EVENT DATE: 20191211
